FAERS Safety Report 12941402 (Version 1)
Quarter: 2016Q4

REPORT INFORMATION
  Report Type: Spontaneous
  Country: US (occurrence: US)
  Receive Date: 20161115
  Receipt Date: 20161115
  Transmission Date: 20170207
  Serious: Yes (Hospitalization)
  Sender: FDA-Public Use
  Company Number: None

PATIENT
  Age: 32 Year
  Sex: Female
  Weight: 99.8 kg

DRUGS (11)
  1. PAXIL [Concomitant]
     Active Substance: PAROXETINE HYDROCHLORIDE
  2. SENTRESS [Concomitant]
  3. FIORICET [Concomitant]
     Active Substance: ACETAMINOPHEN\BUTALBITAL\CAFFEINE
  4. MVI [Concomitant]
     Active Substance: VITAMINS
  5. ATARAX [Concomitant]
     Active Substance: HYDROXYZINE\HYDROXYZINE HYDROCHLORIDE
  6. DAPSONE. [Suspect]
     Active Substance: DAPSONE
     Indication: PROPHYLAXIS
     Dosage: RECENT
     Route: 048
  7. APAP [Concomitant]
     Active Substance: ACETAMINOPHEN
  8. OXACILLIN [Concomitant]
     Active Substance: OXACILLIN SODIUM
  9. OXYCODONE [Concomitant]
     Active Substance: OXYCODONE
  10. BUSPAR [Concomitant]
     Active Substance: BUSPIRONE HYDROCHLORIDE
  11. TRUVADA [Concomitant]
     Active Substance: EMTRICITABINE\TENOFOVIR DISOPROXIL FUMARATE

REACTIONS (3)
  - Drug hypersensitivity [None]
  - Methaemoglobinaemia [None]
  - Hypoxia [None]

NARRATIVE: CASE EVENT DATE: 20150416
